FAERS Safety Report 20208626 (Version 1)
Quarter: 2021Q4

REPORT INFORMATION
  Report Type: Spontaneous
  Country: US (occurrence: US)
  Receive Date: 20211220
  Receipt Date: 20211220
  Transmission Date: 20220303
  Serious: Yes (Other)
  Sender: FDA-Public Use
  Company Number: US-TEVA-2021-US-1989365

PATIENT
  Age: 68 Year
  Sex: Male

DRUGS (1)
  1. ENZALUTAMIDE [Suspect]
     Active Substance: ENZALUTAMIDE
     Route: 065

REACTIONS (6)
  - Prostate cancer metastatic [Unknown]
  - Prostate cancer [Unknown]
  - Pelvic discomfort [Unknown]
  - Metastases to lymph nodes [Unknown]
  - Bone disorder [Unknown]
  - Pulmonary mass [Unknown]
